FAERS Safety Report 9287096 (Version 2)
Quarter: 2013Q2

REPORT INFORMATION
  Report Type: Spontaneous
  Country: US (occurrence: None)
  Receive Date: 20130508
  Receipt Date: 20130618
  Transmission Date: 20140414
  Serious: Yes (Hospitalization, Other)
  Sender: FDA-Public Use
  Company Number: 2013P1005283

PATIENT
  Age: 52 Year
  Sex: Male

DRUGS (4)
  1. INFUMORPH [Suspect]
     Indication: GASTROINTESTINAL CARCINOMA
  2. INFUMORPH [Suspect]
     Indication: CANCER PAIN
  3. BUPIVACAINE [Suspect]
     Indication: GASTROINTESTINAL CARCINOMA
  4. BUPIVACAINE [Suspect]
     Indication: CANCER PAIN

REACTIONS (2)
  - Back pain [None]
  - Bacteraemia [None]
